FAERS Safety Report 20540154 (Version 1)
Quarter: 2022Q1

REPORT INFORMATION
  Report Type: Report from Study
  Country: CA (occurrence: CA)
  Receive Date: 20220302
  Receipt Date: 20220302
  Transmission Date: 20220423
  Serious: Yes (Disabling, Other)
  Sender: FDA-Public Use
  Company Number: CA-OTSUKA-2020_016422

PATIENT
  Age: 31 Year
  Sex: Male

DRUGS (4)
  1. TOLVAPTAN [Suspect]
     Active Substance: TOLVAPTAN
     Indication: Congenital cystic kidney disease
     Dosage: 45 MG, QD (IN MORNING)
     Route: 048
     Dates: start: 20200704
  2. TOLVAPTAN [Suspect]
     Active Substance: TOLVAPTAN
     Dosage: 15 MG, QD (IN EVENING)
     Route: 048
     Dates: start: 20200704
  3. TOLVAPTAN [Suspect]
     Active Substance: TOLVAPTAN
     Dosage: 15 MG, UNK
     Route: 065
  4. TOLVAPTAN [Suspect]
     Active Substance: TOLVAPTAN
     Dosage: 15 MG, UNK
     Route: 065

REACTIONS (10)
  - Immobile [Recovering/Resolving]
  - Intervertebral disc protrusion [Not Recovered/Not Resolved]
  - Back pain [Not Recovered/Not Resolved]
  - Impaired work ability [Unknown]
  - Insomnia [Unknown]
  - Fatigue [Not Recovered/Not Resolved]
  - Polydipsia [Not Recovered/Not Resolved]
  - Nocturia [Not Recovered/Not Resolved]
  - Alanine aminotransferase increased [Unknown]
  - Inappropriate schedule of product administration [Unknown]

NARRATIVE: CASE EVENT DATE: 20200918
